FAERS Safety Report 8603413-7 (Version None)
Quarter: 2012Q3

REPORT INFORMATION
  Report Type: 
  Country: None (occurrence: None)
  Receive Date: 20120817
  Receipt Date: 20120809
  Transmission Date: 20120928
  Serious: Yes (Other)
  Sender: FDA-Public Use
  Company Number: US-ABBOTT-12P-163-0967196-00

PATIENT
  Sex: Male

DRUGS (12)
  1. WARFARIN SODIUM [Concomitant]
     Indication: ATRIAL FIBRILLATION
     Dosage: 5MG/6MG
  2. CARVEDILOL [Concomitant]
     Indication: HYPERTENSION
  3. FUROSEMIDE [Concomitant]
     Indication: OEDEMA PERIPHERAL
  4. FERROUS SULFATE TAB [Concomitant]
     Indication: ANAEMIA
     Dosage: DAILY
  5. VITAMIN D [Concomitant]
     Indication: VITAMIN SUPPLEMENTATION
  6. FISH OIL [Concomitant]
     Indication: SUPPLEMENTATION THERAPY
  7. HUMIRA [Suspect]
     Indication: CROHN'S DISEASE
     Dates: start: 20120615
  8. LORAZEPAM [Concomitant]
     Indication: RELAXATION THERAPY
  9. UNKNOWN BLOOD PRESSURE MEDICATIONS [Concomitant]
     Indication: BLOOD PRESSURE
  10. PENTASA [Concomitant]
     Indication: CROHN'S DISEASE
     Dosage: 3 TABLETS TWICE A DAY
  11. DIGOXIN [Concomitant]
     Indication: ATRIAL FIBRILLATION
     Dosage: DAILY
  12. NEXIUM [Concomitant]
     Indication: GASTROOESOPHAGEAL REFLUX DISEASE
     Dosage: DAILY

REACTIONS (4)
  - IIIRD NERVE DISORDER [None]
  - VISION BLURRED [None]
  - OCULAR VASCULAR DISORDER [None]
  - DIPLOPIA [None]
